FAERS Safety Report 6434435-2 (Version None)
Quarter: 2009Q4

REPORT INFORMATION
  Report Type: 
  Country: None (occurrence: None)
  Receive Date: 20091110
  Receipt Date: 20090908
  Transmission Date: 20100525
  Serious: No
  Sender: FDA-Public Use
  Company Number: US-BAYER-200916325BCC

PATIENT
  Sex: Female

DRUGS (2)
  1. ALEVE [Suspect]
     Indication: ARTHRITIS
     Dosage: AS USED: 660/440 MG  UNIT DOSE: 220 MG
     Route: 048
  2. ADVIL [Concomitant]
     Indication: ARTHRITIS
     Route: 065

REACTIONS (1)
  - NO ADVERSE EVENT [None]
